FAERS Safety Report 9707898 (Version 2)
Quarter: 2013Q4

REPORT INFORMATION
  Report Type: Spontaneous
  Country: US (occurrence: US)
  Receive Date: 20131125
  Receipt Date: 20131227
  Transmission Date: 20140711
  Serious: No
  Sender: FDA-Public Use
  Company Number: US-PFIZER INC-2013333221

PATIENT
  Age: 75 Year
  Sex: Female
  Weight: 52.15 kg

DRUGS (2)
  1. ADVIL PM [Suspect]
     Indication: PAIN
     Dosage: 200/38 MG, AS NEEDED
     Route: 048
     Dates: start: 2012
  2. ADVIL ALLERGY SINUS [Concomitant]
     Indication: HYPERSENSITIVITY
     Dosage: UNK, AS NEEDED

REACTIONS (3)
  - Poor quality drug administered [Unknown]
  - Nasopharyngitis [Not Recovered/Not Resolved]
  - Product physical issue [Unknown]
